FAERS Safety Report 7395256-X (Version None)
Quarter: 2011Q1

REPORT INFORMATION
  Report Type: 
  Country: None (occurrence: None)
  Receive Date: 20110330
  Receipt Date: 20110330
  Transmission Date: 20110831
  Serious: Yes (Other)
  Sender: FDA-Public Use
  Company Number: None

PATIENT
  Sex: Female
  Weight: 103.2 kg

DRUGS (28)
  1. IRON [Concomitant]
  2. FLEXERIL [Concomitant]
  3. OXYCODONE [Concomitant]
  4. ZYRTEC [Concomitant]
  5. SENNA [Concomitant]
  6. COLACE [Concomitant]
  7. ATROVENT [Concomitant]
  8. ENBREL [Concomitant]
  9. FOSAMAX [Concomitant]
  10. PLAQUENIL [Concomitant]
  11. ADVAIR HFA [Concomitant]
  12. MIRALAX [Concomitant]
  13. SPIRIVA [Concomitant]
  14. MAXALT [Concomitant]
  15. COMPAZINE [Concomitant]
  16. KLONOPIN [Concomitant]
  17. HYTRIN [Concomitant]
  18. PROZAC [Concomitant]
  19. ZOFRAN [Concomitant]
  20. KLOR-CON [Concomitant]
  21. KEPPRA [Concomitant]
  22. ACTEMRA [Suspect]
     Indication: RHEUMATOID ARTHRITIS
     Dosage: 400 MG Q24 X 1 IV
     Route: 042
     Dates: start: 20101210
  23. METHOTREXATE [Concomitant]
  24. PREDNISONE [Concomitant]
  25. OXYBUTYNIN [Concomitant]
  26. FLONASE [Concomitant]
  27. REQUIP [Concomitant]
  28. SYNTHROID [Concomitant]

REACTIONS (4)
  - PHARYNGEAL OEDEMA [None]
  - CHEST DISCOMFORT [None]
  - RESPIRATORY DISTRESS [None]
  - DYSPNOEA [None]
